FAERS Safety Report 4478151-5 (Version None)
Quarter: 2004Q4

REPORT INFORMATION
  Report Type: 
  Country: None (occurrence: None)
  Receive Date: 20041014
  Receipt Date: 20040929
  Transmission Date: 20050328
  Serious: Yes (Other)
  Sender: FDA-Public Use
  Company Number: 2003-DE-05697GD

PATIENT
  Age: 39 Year
  Sex: Male

DRUGS (2)
  1. METHADONE (METHADONE) [Suspect]
     Dosage: 300 MG
  2. CLARITHROMYCIN [Suspect]

REACTIONS (4)
  - ELECTROCARDIOGRAM NORMAL [None]
  - ELECTROCARDIOGRAM QT CORRECTED INTERVAL PROLONGED [None]
  - SINUS BRADYCARDIA [None]
  - TORSADE DE POINTES [None]
